FAERS Safety Report 14470778 (Version 1)
Quarter: 2018Q1

REPORT INFORMATION
  Report Type: Spontaneous
  Country: US (occurrence: US)
  Receive Date: 20180131
  Receipt Date: 20180131
  Transmission Date: 20180509
  Serious: Yes (Hospitalization, Other)
  Sender: FDA-Public Use
  Company Number: US-NOVOPROD-583030

PATIENT
  Age: 57 Year
  Sex: Female
  Weight: 90.7 kg

DRUGS (3)
  1. NOVOLOG [Suspect]
     Active Substance: INSULIN ASPART
     Indication: TYPE 1 DIABETES MELLITUS
     Dosage: SLIDING SCALE
     Route: 058
  2. NOVOLOG [Suspect]
     Active Substance: INSULIN ASPART
     Dosage: 20 U, EVERY HOUR
     Route: 058
     Dates: start: 20180118, end: 20180118
  3. NOVOLOG [Suspect]
     Active Substance: INSULIN ASPART
     Dosage: BOLUS DOSE
     Route: 058
     Dates: start: 20180117, end: 20180117

REACTIONS (4)
  - Blood glucose increased [Recovered/Resolved]
  - Product quality issue [Recovered/Resolved]
  - Diabetic ketoacidosis [Recovered/Resolved]
  - Product quality issue [Recovered/Resolved]

NARRATIVE: CASE EVENT DATE: 20180117
